FAERS Safety Report 14313834 (Version 1)
Quarter: 2017Q4

REPORT INFORMATION
  Report Type: Spontaneous
  Country: GB (occurrence: GB)
  Receive Date: 20171221
  Receipt Date: 20171221
  Transmission Date: 20180321
  Serious: Yes (Death)
  Sender: FDA-Public Use
  Company Number: GB-PFIZER INC-2017537622

PATIENT
  Age: 81 Year
  Sex: Male

DRUGS (11)
  1. OMEPRAZOLE. [Concomitant]
     Active Substance: OMEPRAZOLE
     Dosage: UNK
  2. FUROSEMIDE. [Concomitant]
     Active Substance: FUROSEMIDE
     Dosage: 20 MG, 1X/DAY
  3. CODEINE [Concomitant]
     Active Substance: CODEINE
     Dosage: UNK, AS NEEDED
  4. GLICLAZIDE [Concomitant]
     Active Substance: GLICLAZIDE
     Dosage: 40 MG, 1X/DAY
  5. FERROUS FUMARATE [Concomitant]
     Active Substance: FERROUS FUMARATE
     Dosage: UNK
  6. SODIUM FUSIDATE [Concomitant]
     Active Substance: FUSIDATE SODIUM
     Indication: DIABETIC FOOT
     Dosage: 1500 MG, 1X/DAY
     Dates: start: 20170908
  7. CYCLIZINE [Concomitant]
     Active Substance: CYCLIZINE
     Dosage: UNK
  8. BISACODYL. [Concomitant]
     Active Substance: BISACODYL
     Dosage: UNK
  9. FLUCLOXACILLIN [Concomitant]
     Active Substance: FLUCLOXACILLIN
     Indication: DIABETIC FOOT
     Dosage: 4 G, 1X/DAY
     Dates: start: 20170908
  10. ATORVASTATIN CALCIUM. [Suspect]
     Active Substance: ATORVASTATIN CALCIUM
     Dosage: 80 MG, UNK
  11. FUSIDATE SODIUM [Interacting]
     Active Substance: FUSIDATE SODIUM
     Indication: OSTEOMYELITIS ACUTE
     Dosage: 1500 MG, 1X/DAY
     Route: 048
     Dates: start: 20170908, end: 20171004

REACTIONS (5)
  - Forced vital capacity decreased [Not Recovered/Not Resolved]
  - Hypocalcaemia [Not Recovered/Not Resolved]
  - Rhabdomyolysis [Fatal]
  - Asthenia [Not Recovered/Not Resolved]
  - Drug interaction [Not Recovered/Not Resolved]

NARRATIVE: CASE EVENT DATE: 20170921
